FAERS Safety Report 4974032-9 (Version None)
Quarter: 2006Q2

REPORT INFORMATION
  Report Type: 
  Country: None (occurrence: None)
  Receive Date: 20060410
  Receipt Date: 20060328
  Transmission Date: 20061013
  Serious: Yes (Other)
  Sender: FDA-Public Use
  Company Number: 2006016591

PATIENT

DRUGS (1)
  1. DIFLUCAN [Suspect]
     Indication: ILL-DEFINED DISORDER
     Dosage: (400 MG) INTRAVENOUS
     Route: 042

REACTIONS (3)
  - INFUSION SITE EXTRAVASATION [None]
  - INFUSION SITE REACTION [None]
  - PROCEDURAL COMPLICATION [None]
